FAERS Safety Report 5985128-7 (Version None)
Quarter: 2008Q4

REPORT INFORMATION
  Report Type: 
  Country: None (occurrence: None)
  Receive Date: 20081203
  Receipt Date: 20081124
  Transmission Date: 20090506
  Serious: Yes (Death, Hospitalization, Disabling)
  Sender: FDA-Public Use
  Company Number: APP200801185

PATIENT
  Age: 53 Year
  Sex: Female

DRUGS (4)
  1. CYTARABINE [Suspect]
     Indication: MYELOID LEUKAEMIA
     Dosage: FOR THE FIRST 7 DAYS, INTRAVENOUS
     Route: 042
  2. METHOTREXATE [Suspect]
     Indication: MYELOID LEUKAEMIA
     Dosage: INTRATHECAL
     Route: 037
  3. IDARUBICIN HCL [Concomitant]
  4. ALLOPURINOL [Concomitant]

REACTIONS (9)
  - BLOOD PRESSURE FLUCTUATION [None]
  - CHRONIC INFLAMMATORY DEMYELINATING POLYRADICULONEUROPATHY [None]
  - GUILLAIN-BARRE SYNDROME [None]
  - ISCHAEMIC STROKE [None]
  - METASTASES TO MENINGES [None]
  - PNEUMONIA [None]
  - RESPIRATORY FAILURE [None]
  - SEPSIS [None]
  - VASCULITIS [None]
